APPROVED DRUG PRODUCT: LEVETIRACETAM
Active Ingredient: LEVETIRACETAM
Strength: 500MG/5ML (100MG/ML)
Dosage Form/Route: INJECTABLE;INTRAVENOUS
Application: A211954 | Product #001 | TE Code: AP
Applicant: MICRO LABS LTD
Approved: Aug 9, 2019 | RLD: No | RS: No | Type: RX